FAERS Safety Report 5285308-2 (Version None)
Quarter: 2007Q2

REPORT INFORMATION
  Report Type: 
  Country: None (occurrence: None)
  Receive Date: 20070403
  Receipt Date: 20070326
  Transmission Date: 20071010
  Serious: Yes (Hospitalization)
  Sender: FDA-Public Use
  Company Number: JP-ROXANE LABORATORIES, INC-2007-BP-04192RO

PATIENT
  Age: 53 Year
  Sex: Female

DRUGS (4)
  1. METHOTREXATE [Suspect]
     Indication: DERMATOMYOSITIS
     Dosage: 7.5 MG WEEKLY
     Dates: start: 20030401
  2. PREDNISOLONE [Suspect]
     Indication: DERMATOMYOSITIS
     Dates: start: 19990101
  3. INSULIN [Suspect]
     Indication: DIABETES MELLITUS
  4. VOGLIBOSE [Suspect]
     Indication: DIABETES MELLITUS
     Dosage: 0.6 MG DAILY
     Route: 048

REACTIONS (4)
  - PNEUMATOSIS INTESTINALIS [None]
  - PNEUMOMEDIASTINUM [None]
  - PNEUMOPERITONEUM [None]
  - SUBCUTANEOUS EMPHYSEMA [None]
